FAERS Safety Report 6411015-6 (Version None)
Quarter: 2009Q4

REPORT INFORMATION
  Report Type: 
  Country: None (occurrence: None)
  Receive Date: 20091022
  Receipt Date: 20091016
  Transmission Date: 20100525
  Serious: Yes (Death)
  Sender: FDA-Public Use
  Company Number: RU-GENENTECH-286867

PATIENT
  Sex: Female

DRUGS (4)
  1. AVASTIN [Suspect]
     Indication: BREAST CANCER
     Dosage: 795 MG, Q3W
     Route: 042
     Dates: start: 20090602
  2. HERCEPTIN [Suspect]
     Indication: BREAST CANCER
     Dosage: 318 MG, Q3W
     Route: 042
     Dates: start: 20090602
  3. CAPECITABINE [Suspect]
     Indication: BREAST CANCER
     Dosage: 300 MG, UNK
     Route: 048
     Dates: start: 20090602
  4. TRIMETAZIDINE [Concomitant]
     Indication: DRUG USE FOR UNKNOWN INDICATION
     Dosage: UNK
     Dates: start: 20080424

REACTIONS (1)
  - CARDIAC FAILURE ACUTE [None]
